FAERS Safety Report 9289960 (Version 3)
Quarter: 2013Q3

REPORT INFORMATION
  Report Type: Spontaneous
  Country: US (occurrence: US)
  Receive Date: 20130515
  Receipt Date: 20130716
  Transmission Date: 20140515
  Serious: Yes (Other)
  Sender: FDA-Public Use
  Company Number: US-BAYER-2013-057766

PATIENT
  Age: 58 Year
  Sex: Female

DRUGS (2)
  1. STIVARGA [Suspect]
     Indication: GASTROINTESTINAL STROMAL TUMOUR
     Dosage: 80 MG, QOD
     Route: 048
     Dates: start: 201304
  2. STIVARGA [Suspect]
     Indication: CHRONIC MYELOID LEUKAEMIA
     Dosage: 120 MG, QOD
     Route: 048
     Dates: start: 201304

REACTIONS (6)
  - Blood glucose increased [None]
  - Cough [None]
  - Off label use [None]
  - Arthralgia [None]
  - Diarrhoea [None]
  - Myalgia [None]
